FAERS Safety Report 20348462 (Version 1)
Quarter: 2022Q1

REPORT INFORMATION
  Report Type: Spontaneous
  Country: US (occurrence: US)
  Receive Date: 20220119
  Receipt Date: 20220119
  Transmission Date: 20220424
  Serious: No
  Sender: FDA-Public Use
  Company Number: US-BRISTOL-MYERS SQUIBB COMPANY-BMS-2022-004235

PATIENT
  Age: 34 Year
  Sex: Male
  Weight: 111.11 kg

DRUGS (3)
  1. ELIQUIS [Suspect]
     Active Substance: APIXABAN
     Indication: Product used for unknown indication
     Dosage: UNK
     Route: 065
     Dates: start: 20211227
  2. REMODULIN [Suspect]
     Active Substance: TREPROSTINIL
     Indication: Pulmonary arterial hypertension
     Dosage: UNK
     Route: 058
     Dates: start: 20191223
  3. REMODULIN [Suspect]
     Active Substance: TREPROSTINIL
     Dosage: 0.0429 MICROGRAM/KG
     Route: 058

REACTIONS (2)
  - Infusion site haemorrhage [Recovering/Resolving]
  - Infusion site swelling [Unknown]

NARRATIVE: CASE EVENT DATE: 20211229
